FAERS Safety Report 7833217-4 (Version None)
Quarter: 2011Q4

REPORT INFORMATION
  Report Type: 
  Country: None (occurrence: None)
  Receive Date: 20111024
  Receipt Date: 20111021
  Transmission Date: 20120403
  Serious: Yes (Other)
  Sender: FDA-Public Use
  Company Number: CR-PFIZER INC-2011255861

PATIENT
  Age: 70 Year
  Sex: Female
  Weight: 70 kg

DRUGS (2)
  1. LIPITOR [Suspect]
     Dosage: 20 MG, 1X/DAY
     Dates: start: 20110201, end: 20110401
  2. PANTOPRAZOLE [Concomitant]
     Dosage: UNK

REACTIONS (2)
  - MUSCULOSKELETAL DISORDER [None]
  - ARTHRITIS [None]
